FAERS Safety Report 22525616 (Version 1)
Quarter: 2023Q2

REPORT INFORMATION
  Report Type: Spontaneous
  Country: US (occurrence: None)
  Receive Date: 20230605
  Receipt Date: 20230605
  Transmission Date: 20230721
  Serious: Yes (Other)
  Sender: FDA-Public Use
  Company Number: None

PATIENT
  Age: 11 Year
  Sex: Female
  Weight: 26.1 kg

DRUGS (3)
  1. PURELAX [Suspect]
     Active Substance: POLYETHYLENE GLYCOL 3350
  2. CLEARLAX [Suspect]
     Active Substance: POLYETHYLENE GLYCOL 3350
  3. POLYETHYLENE GLYCOL (POLYETHYLENE GLYCOL 3350) [Suspect]
     Active Substance: POLYETHYLENE GLYCOL 3350

REACTIONS (2)
  - Anger [None]
  - Aggression [None]

NARRATIVE: CASE EVENT DATE: 20230524
